FAERS Safety Report 12109272 (Version 3)
Quarter: 2016Q2

REPORT INFORMATION
  Report Type: Spontaneous
  Country: US (occurrence: US)
  Receive Date: 20160224
  Receipt Date: 20160418
  Transmission Date: 20160815
  Serious: No
  Sender: FDA-Public Use
  Company Number: US-PFIZER INC-2016108750

PATIENT
  Sex: Female

DRUGS (2)
  1. ADVIL [Suspect]
     Active Substance: IBUPROFEN
     Dosage: 2 DF, EVERY 4 HRS
  2. ADVIL [Suspect]
     Active Substance: IBUPROFEN
     Dosage: TOOK 12 ADVILS WITHIN 18 HOURS

REACTIONS (2)
  - Swelling face [Unknown]
  - Intentional product misuse [Unknown]
